FAERS Safety Report 10343479 (Version 1)
Quarter: 2014Q3

REPORT INFORMATION
  Report Type: Spontaneous
  Country: DE (occurrence: None)
  Receive Date: 20140723
  Receipt Date: 20140723
  Transmission Date: 20150326
  Serious: Yes (Hospitalization)
  Sender: FDA-Public Use
  Company Number: AUR-APL-2014-07824

PATIENT
  Sex: Female

DRUGS (1)
  1. TAMSULOSIN 0.4MG (TAMSULOSIN) UNKNOWN, 0.4MG [Suspect]
     Active Substance: TAMSULOSIN
     Indication: PRODUCT USED FOR UNKNOWN INDICATION

REACTIONS (4)
  - Blood pressure decreased [None]
  - Asthenia [None]
  - Tremor [None]
  - Dizziness [None]
